FAERS Safety Report 17967963 (Version 1)
Quarter: 2020Q3

REPORT INFORMATION
  Report Type: Report from Study
  Country: IT (occurrence: IT)
  Receive Date: 20200701
  Receipt Date: 20200701
  Transmission Date: 20201103
  Serious: Yes (Hospitalization)
  Sender: FDA-Public Use
  Company Number: IT-ACCORD-187948

PATIENT
  Age: 89 Year
  Sex: Male

DRUGS (5)
  1. TRIATEC [Concomitant]
     Dosage: STRENGTH? 2,5 MG
  2. LANSOX [Concomitant]
     Active Substance: LANSOPRAZOLE
  3. CLOPIDOGREL [Suspect]
     Active Substance: CLOPIDOGREL BISULFATE
     Indication: PRODUCT USED FOR UNKNOWN INDICATION
  4. LOPRESOR [Concomitant]
     Active Substance: METOPROLOL
  5. ASCRIPTIN [Suspect]
     Active Substance: ASPIRIN
     Indication: PRODUCT USED FOR UNKNOWN INDICATION
     Route: 048

REACTIONS (1)
  - Diarrhoea haemorrhagic [Recovering/Resolving]

NARRATIVE: CASE EVENT DATE: 20200105
